FAERS Safety Report 5118224-7 (Version None)
Quarter: 2006Q4

REPORT INFORMATION
  Report Type: 
  Country: None (occurrence: None)
  Receive Date: 20061002
  Receipt Date: 20060607
  Transmission Date: 20070319
  Serious: No
  Sender: FDA-Public Use
  Company Number: US-BRISTOL-MYERS SQUIBB COMPANY-13404397

PATIENT
  Age: 81 Year
  Sex: Female
  Weight: 43 kg

DRUGS (6)
  1. ORENCIA [Suspect]
     Indication: RHEUMATOID ARTHRITIS
     Route: 042
     Dates: start: 20060401
  2. LEVOXYL [Concomitant]
  3. CITRACAL [Concomitant]
  4. ESTER-C [Concomitant]
  5. MULTI-VITAMIN [Concomitant]
  6. ATENOLOL [Concomitant]

REACTIONS (8)
  - ARTHRALGIA [None]
  - BALANCE DISORDER [None]
  - COORDINATION ABNORMAL [None]
  - DIZZINESS [None]
  - FATIGUE [None]
  - MUSCULOSKELETAL PAIN [None]
  - NERVOUSNESS [None]
  - TREMOR [None]
